FAERS Safety Report 21609752 (Version 1)
Quarter: 2022Q4

REPORT INFORMATION
  Report Type: Spontaneous
  Country: DE (occurrence: DE)
  Receive Date: 20221117
  Receipt Date: 20221117
  Transmission Date: 20230113
  Serious: Yes (Hospitalization)
  Sender: FDA-Public Use
  Company Number: DE-ADRED-08290-01

PATIENT
  Age: 62 Year
  Sex: Male

DRUGS (8)
  1. CANDESARTAN [Suspect]
     Active Substance: CANDESARTAN
     Indication: Product used for unknown indication
     Dosage: 16 MG, 2-0-2-0
     Route: 048
  2. CYCLOSPORINE [Suspect]
     Active Substance: CYCLOSPORINE
     Indication: Product used for unknown indication
     Dosage: 50 MG, 0-0-1-0
     Route: 048
  3. ALLOPURINOL [Suspect]
     Active Substance: ALLOPURINOL
     Indication: Product used for unknown indication
     Dosage: 300 MG, 0-0-1-0
     Route: 048
  4. ATORVASTATIN [Concomitant]
     Active Substance: ATORVASTATIN
     Dosage: 80 MG, 0-0-1-0
     Route: 048
  5. PANTOPRAZOLE SODIUM [Concomitant]
     Active Substance: PANTOPRAZOLE SODIUM
     Dosage: 40 MG, 0-0-0-1
     Route: 048
  6. ASPIRIN [Concomitant]
     Active Substance: ASPIRIN
     Dosage: 100 MG, 0-1-0-0
     Route: 048
  7. ALFACALCIDOL [Concomitant]
     Active Substance: ALFACALCIDOL
     Dosage: 0.25 ?G, 0-0-1-0
     Route: 048
  8. CARVEDILOL [Concomitant]
     Active Substance: CARVEDILOL
     Dosage: 6.25 MG, 1-0-1-0
     Route: 048

REACTIONS (2)
  - Chest discomfort [Unknown]
  - Intermittent claudication [Unknown]
